FAERS Safety Report 8300123-0 (Version None)
Quarter: 2012Q2

REPORT INFORMATION
  Report Type: 
  Country: None (occurrence: None)
  Receive Date: 20120420
  Receipt Date: 20120417
  Transmission Date: 20120825
  Serious: Yes (Other)
  Sender: FDA-Public Use
  Company Number: US-PFIZER INC-2012034685

PATIENT
  Sex: Male

DRUGS (3)
  1. HYTRIN [Suspect]
     Dosage: UNK
  2. ATIVAN [Suspect]
     Dosage: UNK
  3. CELEBREX [Suspect]
     Dosage: 200 MG, UNK
     Route: 048

REACTIONS (2)
  - RENAL IMPAIRMENT [None]
  - DRUG HYPERSENSITIVITY [None]
